FAERS Safety Report 4592553-8 (Version None)
Quarter: 2005Q1

REPORT INFORMATION
  Report Type: 
  Country: None (occurrence: None)
  Receive Date: 20050222
  Receipt Date: 20050210
  Transmission Date: 20050727
  Serious: Yes (Other)
  Sender: FDA-Public Use
  Company Number: 25550

PATIENT
  Age: 52 Year
  Sex: Male

DRUGS (2)
  1. ALDARA [Suspect]
     Indication: BOWEN'S DISEASE
     Dosage: (1 SACHET, 3 IN 1 WEEK (S)), TOPICAL
     Route: 061
     Dates: start: 20040818, end: 20040903
  2. PLAQUENIL [Suspect]
     Indication: RHEUMATOID ARTHRITIS
     Dosage: ORAL
     Route: 048
     Dates: end: 20041101

REACTIONS (11)
  - APPLICATION SITE DERMATITIS [None]
  - BACK PAIN [None]
  - BLOOD PRESSURE INCREASED [None]
  - DRUG EFFECT DECREASED [None]
  - GRANULOMA [None]
  - LARYNGITIS [None]
  - LOCALISED INFECTION [None]
  - NAIL DISCOLOURATION [None]
  - PORPHYRIA [None]
  - STAPHYLOCOCCAL INFECTION [None]
  - THERAPEUTIC RESPONSE UNEXPECTED [None]
